FAERS Safety Report 9077816 (Version 1)
Quarter: 2013Q1

REPORT INFORMATION
  Report Type: Report from Study
  Country: US (occurrence: US)
  Receive Date: 20130130
  Receipt Date: 20130130
  Transmission Date: 20140127
  Serious: Yes (Hospitalization)
  Sender: FDA-Public Use
  Company Number: US-ABBOTT-12P-163-0952165-00

PATIENT
  Sex: Female
  Weight: 88.08 kg

DRUGS (8)
  1. HUMIRA 40 MG/0.8 ML PEN [Suspect]
     Indication: PSORIATIC ARTHROPATHY
     Route: 058
     Dates: start: 201010
  2. METHOTREXATE [Concomitant]
     Indication: PSORIATIC ARTHROPATHY
  3. OXYCONTIN [Concomitant]
     Indication: PAIN
  4. DILAUDID [Concomitant]
     Indication: PAIN
  5. KLONOPIN [Concomitant]
     Indication: INSOMNIA
  6. FLEXERIL [Concomitant]
     Indication: MUSCLE RELAXANT THERAPY
  7. PROTONIX [Concomitant]
     Indication: GASTRIC DISORDER
  8. FOLIC ACID [Concomitant]
     Indication: VITAMIN SUPPLEMENTATION

REACTIONS (4)
  - Herpes zoster [Recovered/Resolved]
  - Pneumonia [Recovered/Resolved]
  - Dehydration [Recovered/Resolved]
  - Dyspnoea [Recovered/Resolved]
